FAERS Safety Report 6920478-9 (Version None)
Quarter: 2010Q3

REPORT INFORMATION
  Report Type: 
  Country: None (occurrence: None)
  Receive Date: 20100812
  Receipt Date: 20100803
  Transmission Date: 20110219
  Serious: No
  Sender: FDA-Public Use
  Company Number: US-BIOGENIDEC-2010BI023700

PATIENT
  Age: 46 Year
  Sex: Female

DRUGS (9)
  1. TYSABRI [Suspect]
     Indication: MULTIPLE SCLEROSIS
     Route: 042
     Dates: start: 20080512
  2. FLINTSTONES (VITAMINS) [Concomitant]
  3. ATENOLOL [Concomitant]
  4. RANITIDINE [Concomitant]
  5. ASPIRIN [Concomitant]
  6. TRICOR [Concomitant]
  7. VITAMIN D [Concomitant]
  8. BACLOFEN [Concomitant]
  9. TRAMADOL HYDROCHLORIDE [Concomitant]

REACTIONS (4)
  - HEADACHE [None]
  - MULTIPLE SCLEROSIS RELAPSE [None]
  - PLATELET COUNT INCREASED [None]
  - WHITE BLOOD CELL COUNT INCREASED [None]
